FAERS Safety Report 25587671 (Version 5)
Quarter: 2025Q4

REPORT INFORMATION
  Report Type: Report from Study
  Country: KR (occurrence: KR)
  Receive Date: 20250721
  Receipt Date: 20251209
  Transmission Date: 20260117
  Serious: Yes (Death, Hospitalization, Other)
  Sender: ABBVIE
  Company Number: KR-ABBVIE-6379747

PATIENT
  Age: 79 Year
  Sex: Male

DRUGS (33)
  1. VENCLEXTA [Suspect]
     Active Substance: VENETOCLAX
     Indication: Acute myeloid leukaemia
     Dosage: FILM-COATED TABLET
     Route: 048
     Dates: start: 20240102, end: 20240125
  2. VENCLEXTA [Suspect]
     Active Substance: VENETOCLAX
     Indication: Acute myeloid leukaemia
     Route: 048
     Dates: start: 20231130, end: 20231223
  3. VENCLEXTA [Suspect]
     Active Substance: VENETOCLAX
     Indication: Acute myeloid leukaemia
     Route: 048
     Dates: start: 20231127, end: 20231127
  4. VENCLEXTA [Suspect]
     Active Substance: VENETOCLAX
     Indication: Acute myeloid leukaemia
     Route: 048
     Dates: start: 20231128, end: 20231128
  5. VENCLEXTA [Suspect]
     Active Substance: VENETOCLAX
     Indication: Acute myeloid leukaemia
     Route: 048
     Dates: start: 20231129, end: 20231129
  6. REBAMIPIDE [Concomitant]
     Active Substance: REBAMIPIDE
     Indication: Gastritis
     Dosage: TIME INTERVAL: 0.33333333 DAYS: 100 MG
     Route: 048
     Dates: start: 20231216, end: 20231228
  7. NOXAFIL [Concomitant]
     Active Substance: POSACONAZOLE
     Indication: Infection
     Dosage: 100 MG
     Route: 048
     Dates: start: 20231127, end: 20231127
  8. NOXAFIL [Concomitant]
     Active Substance: POSACONAZOLE
     Indication: Infection
     Dosage: 100 MG
     Route: 048
     Dates: start: 20231128, end: 20231218
  9. CILOSTAZOL [Concomitant]
     Active Substance: CILOSTAZOL
     Indication: Ischaemic cerebral infarction
     Dosage: 100 MG
     Route: 048
  10. BISOPROLOL FUMARATE [Concomitant]
     Active Substance: BISOPROLOL FUMARATE
     Indication: Hyperlipidaemia
     Dosage: 10 MG
     Route: 048
  11. DONGKWANG MEROPENEM [Concomitant]
     Indication: Pyrexia
     Dosage: TIME INTERVAL: 0.33333333 DAYS: 1 G
     Route: 042
     Dates: start: 20231215, end: 20231228
  12. MAGO [Concomitant]
     Indication: Constipation
     Dosage: 500 MG
     Route: 048
     Dates: start: 20231205, end: 20231228
  13. TAZOPERAN [Concomitant]
     Indication: Infection
     Dosage: UNIT DOSE: 1 VIAL,  4.5 G
     Route: 042
     Dates: start: 20231125, end: 20231208
  14. TAZOPERAN [Concomitant]
     Indication: Infection
     Dosage: UNIT DOSE: 1VIAL, 1 G
     Route: 042
     Dates: start: 20231213, end: 20231215
  15. CEFAZOLINE YUHAN [Concomitant]
     Indication: Cellulitis
     Dosage: TIME INTERVAL: 0.33333333 DAYS
     Route: 042
     Dates: start: 20231130, end: 20231206
  16. ALMAGEL [Concomitant]
     Indication: Dyspepsia
     Dosage: TIME INTERVAL: 0.33333333 DAYS: UNIT DOSE: 1 PACK, SUSPENSION
     Route: 048
     Dates: start: 20231205, end: 20231228
  17. DACOGEN [Concomitant]
     Active Substance: DECITABINE
     Indication: Acute myeloid leukaemia
     Route: 042
     Dates: start: 20240102, end: 20240106
  18. DACOGEN [Concomitant]
     Active Substance: DECITABINE
     Indication: Acute myeloid leukaemia
     Route: 042
     Dates: start: 20231127, end: 20231201
  19. LODIEN [Concomitant]
     Indication: Hypertension
     Dosage: 2.5 MG
     Route: 048
  20. DULACKHAN EASY [Concomitant]
     Indication: Constipation
     Dosage: SYRINGE, 15 ML
     Route: 048
     Dates: start: 20231205, end: 20231228
  21. EZET [Concomitant]
     Indication: Hyperlipidaemia
     Dosage: 10 MG
     Route: 048
  22. ARTEMISIA ARGYI LEAF [Concomitant]
     Active Substance: ARTEMISIA ARGYI LEAF
     Indication: Gastritis
     Route: 048
  23. AMBISOME [Concomitant]
     Active Substance: AMPHOTERICIN B
     Indication: Pyrexia
     Route: 042
     Dates: start: 20231219, end: 20231228
  24. MOSAPRIDE CITRATE [Concomitant]
     Active Substance: MOSAPRIDE CITRATE
     Indication: Dyspepsia
     Dosage: TIME INTERVAL: 0.33333333 DAYS: 5 MG
     Route: 048
     Dates: start: 20231205, end: 20231228
  25. Yuyu acetrama semi er [Concomitant]
     Indication: Arthralgia
     Route: 048
     Dates: start: 20231211, end: 20231228
  26. CHOLINE ALFOSCERATE [Concomitant]
     Active Substance: CHOLINE ALFOSCERATE
     Indication: Ischaemic cerebral infarction
     Route: 048
  27. ARIDONE [Concomitant]
     Indication: Ischaemic cerebral infarction
     Dosage: 5 MG
     Route: 048
  28. PANTOPRAZOLE SODIUM [Concomitant]
     Active Substance: PANTOPRAZOLE SODIUM
     Indication: Gastritis
     Dosage: 40MG
     Route: 048
     Dates: start: 20231205, end: 20231215
  29. PANTOPRAZOLE SODIUM [Concomitant]
     Active Substance: PANTOPRAZOLE SODIUM
     Indication: Gastritis
     Dosage: 40 MG
     Route: 048
     Dates: start: 20231216, end: 20231228
  30. WINUF [Concomitant]
     Indication: Decreased appetite
     Dosage: UNIT DOSE: 1PACK, 736 ML
     Route: 042
     Dates: start: 20231207, end: 20231228
  31. DARIM CELECOXIB [Concomitant]
     Indication: Arthralgia
     Dosage: 200 MG
     Route: 048
     Dates: start: 20231211, end: 20231228
  32. FEXUCLUE [Concomitant]
     Indication: Gastritis
     Dosage: 40 MG
     Route: 048
  33. LEVOPLUS [Concomitant]
     Indication: Infection
     Dosage: 750 MG
     Route: 048
     Dates: start: 20231228

REACTIONS (1)
  - Septic shock [Fatal]

NARRATIVE: CASE EVENT DATE: 20240125
